FAERS Safety Report 7820018-6 (Version None)
Quarter: 2011Q4

REPORT INFORMATION
  Report Type: 
  Country: None (occurrence: None)
  Receive Date: 20111018
  Receipt Date: 20111011
  Transmission Date: 20120403
  Serious: Yes (Other)
  Sender: FDA-Public Use
  Company Number: PHHY2011NL89874

PATIENT
  Sex: Male

DRUGS (2)
  1. ZOMETA [Suspect]
     Indication: PROSTATE CANCER METASTATIC
     Dosage: 4 MG, PER 5ML
     Route: 042
     Dates: start: 20110718
  2. ZOMETA [Suspect]
     Dosage: 4 MG, PER 5 ML
     Route: 042
     Dates: start: 20110913

REACTIONS (1)
  - TERMINAL STATE [None]
